FAERS Safety Report 15161049 (Version 1)
Quarter: 2018Q3

REPORT INFORMATION
  Report Type: Report from Study
  Country: TR (occurrence: TR)
  Receive Date: 20180718
  Receipt Date: 20180718
  Transmission Date: 20181010
  Serious: Yes (Other)
  Sender: FDA-Public Use
  Company Number: TR-JAZZ-2018-TR-007581

PATIENT
  Age: 34 Year
  Sex: Male
  Weight: 83 kg

DRUGS (3)
  1. XYREM [Suspect]
     Active Substance: SODIUM OXYBATE
     Indication: NARCOLEPSY
     Dosage: 7.5 G, UNK
     Route: 048
     Dates: start: 20180206, end: 2018
  2. XYREM [Suspect]
     Active Substance: SODIUM OXYBATE
     Indication: CATAPLEXY
     Dosage: 9 G, UNK
     Route: 048
     Dates: start: 20180501, end: 2018
  3. XYREM [Suspect]
     Active Substance: SODIUM OXYBATE
     Dosage: 7.5 G, UNK
     Route: 048
     Dates: start: 20180702

REACTIONS (9)
  - Headache [Recovered/Resolved]
  - Anxiety [Unknown]
  - Anger [Recovered/Resolved]
  - Eating disorder [Unknown]
  - Suicidal ideation [Unknown]
  - Depression [Unknown]
  - Nausea [Recovered/Resolved]
  - Aggression [Recovered/Resolved]
  - Decreased appetite [Unknown]

NARRATIVE: CASE EVENT DATE: 20180328
